FAERS Safety Report 6411421-X (Version None)
Quarter: 2009Q4

REPORT INFORMATION
  Report Type: 
  Country: None (occurrence: None)
  Receive Date: 20091023
  Receipt Date: 20091016
  Transmission Date: 20100525
  Serious: Yes (Hospitalization)
  Sender: FDA-Public Use
  Company Number: US-ELI_LILLY_AND_COMPANY-US200910000163

PATIENT
  Sex: Male

DRUGS (8)
  1. HUMALOG [Suspect]
     Indication: TYPE 1 DIABETES MELLITUS
     Dosage: UNK, AS NEEDED
     Dates: start: 19940101
  2. HUMULIN N [Suspect]
     Indication: TYPE 1 DIABETES MELLITUS
     Dosage: 23 U, EACH MORNING
     Dates: start: 19940101
  3. HUMULIN N [Suspect]
     Dosage: UNK, EACH EVENING
  4. HUMULIN R [Suspect]
     Indication: TYPE 1 DIABETES MELLITUS
     Dosage: 27 U, EACH MORNING
     Dates: start: 19940101
  5. HUMULIN R [Suspect]
     Dosage: UNK, EACH EVENING
  6. MINIPRESS [Concomitant]
  7. SYNTHROID [Concomitant]
  8. HYDROCHLOROTHIAZIDE [Concomitant]

REACTIONS (8)
  - ANXIETY [None]
  - BLOOD GLUCOSE DECREASED [None]
  - BLOOD GLUCOSE INCREASED [None]
  - DISCOMFORT [None]
  - GASTROENTERITIS VIRAL [None]
  - HEART RATE IRREGULAR [None]
  - HYPERTENSION [None]
  - STRESS [None]
